FAERS Safety Report 4402805-X (Version None)
Quarter: 2004Q3

REPORT INFORMATION
  Report Type: 
  Country: None (occurrence: None)
  Receive Date: 20040719
  Receipt Date: 20040708
  Transmission Date: 20050211
  Serious: Yes (Life-Threatening, Hospitalization)
  Sender: FDA-Public Use
  Company Number: 2004UW10358

PATIENT
  Age: 25 Year
  Sex: Male

DRUGS (6)
  1. IRESSA [Suspect]
     Indication: SARCOMA
     Dates: start: 20040514
  2. IRESSA [Suspect]
     Indication: SARCOMA
  3. OXYCONTIN [Concomitant]
  4. VICODIN [Concomitant]
  5. GLUCOPHAGE [Concomitant]
  6. INSULIN [Concomitant]

REACTIONS (3)
  - ANAPHYLACTIC REACTION [None]
  - METASTASES TO LUNG [None]
  - RESPIRATORY DISTRESS [None]
